FAERS Safety Report 15192134 (Version 1)
Quarter: 2018Q3

REPORT INFORMATION
  Report Type: Spontaneous
  Country: FI (occurrence: FI)
  Receive Date: 20180724
  Receipt Date: 20180724
  Transmission Date: 20181010
  Serious: Yes (Hospitalization)
  Sender: FDA-Public Use
  Company Number: PHHY2018FI052230

PATIENT
  Sex: Female

DRUGS (1)
  1. LAMOTRIGINE. [Suspect]
     Active Substance: LAMOTRIGINE
     Indication: MIGRAINE PROPHYLAXIS
     Dosage: UNK
     Route: 048

REACTIONS (3)
  - Alanine aminotransferase increased [Unknown]
  - Meningitis aseptic [Unknown]
  - Meningitis viral [Unknown]

NARRATIVE: CASE EVENT DATE: 201511
